FAERS Safety Report 4977150-4 (Version None)
Quarter: 2006Q2

REPORT INFORMATION
  Report Type: 
  Country: None (occurrence: None)
  Receive Date: 20060413
  Receipt Date: 20060330
  Transmission Date: 20061013
  Serious: Yes (Other)
  Sender: FDA-Public Use
  Company Number: DSA_81568_2006

PATIENT
  Age: 50 Year
  Sex: Female
  Weight: 54.4316 kg

DRUGS (3)
  1. XYREM [Suspect]
     Indication: FIBROMYALGIA
     Dosage: 1.5 G NIGHTLY PO
     Route: 048
     Dates: start: 20051001
  2. XYREM [Suspect]
     Indication: FIBROMYALGIA
     Dosage: 2.75 G NIGHTLY PO
     Route: 048
  3. XYREM [Suspect]
     Indication: FIBROMYALGIA
     Dosage: VAR TWICE NIGHTLY PO
     Route: 048
     Dates: start: 20060201

REACTIONS (5)
  - DRUG TOLERANCE [None]
  - FALL [None]
  - INSOMNIA [None]
  - PERSONALITY CHANGE [None]
  - SLEEP WALKING [None]
